FAERS Safety Report 10010182 (Version 2)
Quarter: 2014Q1

REPORT INFORMATION
  Report Type: Spontaneous
  Country: US (occurrence: US)
  Receive Date: 20140312
  Receipt Date: 20140312
  Transmission Date: 20141002
  Serious: No
  Sender: FDA-Public Use
  Company Number: US-INCYTE CORPORATION-2013IN001223

PATIENT
  Age: 64 Year
  Sex: Male

DRUGS (3)
  1. JAKAFI [Suspect]
     Indication: MYELOFIBROSIS
     Dosage: 20 MG, BID
     Route: 048
     Dates: start: 20130605, end: 201306
  2. JAKAFI [Suspect]
     Dosage: 20 MG, BID
     Route: 048
     Dates: start: 201306
  3. SPIRIVA [Suspect]
     Indication: CHRONIC OBSTRUCTIVE PULMONARY DISEASE
     Dosage: NOT SPECIFIED

REACTIONS (5)
  - Abdominal pain [Not Recovered/Not Resolved]
  - Chest discomfort [Unknown]
  - Dyspnoea [None]
  - Inhibitory drug interaction [Unknown]
  - Pneumonitis [Unknown]
